FAERS Safety Report 21188331 (Version 2)
Quarter: 2022Q3

REPORT INFORMATION
  Report Type: Spontaneous
  Country: US (occurrence: US)
  Receive Date: 20220809
  Receipt Date: 20220811
  Transmission Date: 20221026
  Serious: No
  Sender: FDA-Public Use
  Company Number: US-AMGEN-USASP2022135012

PATIENT
  Age: 50 Year
  Sex: Female
  Weight: 52.154 kg

DRUGS (1)
  1. AIMOVIG [Suspect]
     Active Substance: ERENUMAB-AOOE
     Indication: Migraine
     Dosage: UNK UNK, QMO
     Route: 030

REACTIONS (2)
  - Lethargy [Recovered/Resolved]
  - Incorrect route of product administration [Unknown]
